FAERS Safety Report 11667105 (Version 1)
Quarter: 2015Q4

REPORT INFORMATION
  Report Type: Spontaneous
  Country: US (occurrence: US)
  Receive Date: 20151027
  Receipt Date: 20151027
  Transmission Date: 20160304
  Serious: No
  Sender: FDA-Public Use
  Company Number: US-ELI_LILLY_AND_COMPANY-US201002002608

PATIENT
  Sex: Female

DRUGS (2)
  1. FORTEO [Suspect]
     Active Substance: TERIPARATIDE
     Indication: OSTEOPOROSIS
     Dosage: 20 UG, DAILY (1/D)
     Dates: start: 20100126
  2. ASPERCREME NOS [Concomitant]
     Active Substance: MENTHOL\TROLAMINE SALICYLATE
     Indication: MUSCLE SPASMS
     Dosage: UNK, UNKNOWN

REACTIONS (12)
  - Peripheral coldness [Unknown]
  - Bone pain [Not Recovered/Not Resolved]
  - Musculoskeletal discomfort [Not Recovered/Not Resolved]
  - Nausea [Recovering/Resolving]
  - Muscle spasms [Recovering/Resolving]
  - Muscle disorder [Not Recovered/Not Resolved]
  - Insomnia [Unknown]
  - Feeling abnormal [Unknown]
  - Pain [Unknown]
  - Arthralgia [Not Recovered/Not Resolved]
  - Pain in extremity [Unknown]
  - Asthenia [Unknown]

NARRATIVE: CASE EVENT DATE: 2010
